FAERS Safety Report 8932201 (Version 2)
Quarter: 2012Q4

REPORT INFORMATION
  Report Type: 
  Country: CH (occurrence: CH)
  Receive Date: 20121128
  Receipt Date: 20121205
  Transmission Date: 20130627
  Serious: Yes (Hospitalization)
  Sender: FDA-Public Use
  Company Number: CH-JNJFOC-20121110851

PATIENT
  Age: 49 Year
  Sex: Male

DRUGS (7)
  1. ITRACONAZOLE [Suspect]
     Indication: TRICHOPHYTIC GRANULOMA
     Dosage: serum level found to be 100 ng/ mL then increased dose
     Route: 065
  2. ITRACONAZOLE [Suspect]
     Indication: TRICHOPHYTIC GRANULOMA
     Route: 065
  3. ITRACONAZOLE [Suspect]
     Indication: TRICHOPHYTIC GRANULOMA
     Route: 042
  4. ITRACONAZOLE [Suspect]
     Indication: TRICHOPHYTIC GRANULOMA
     Route: 048
  5. TACROLIMUS [Interacting]
     Indication: IMMUNOSUPPRESSION
     Route: 065
  6. PREDNISONE [Concomitant]
     Indication: IMMUNOSUPPRESSION
     Route: 065
  7. AZATHIOPRINE [Concomitant]
     Indication: IMMUNOSUPPRESSION
     Route: 065

REACTIONS (6)
  - Cutaneous sporotrichosis [Unknown]
  - Drug level decreased [Recovered/Resolved]
  - Drug interaction [Recovered/Resolved]
  - Staphylococcal sepsis [Unknown]
  - Trichophytic granuloma [Unknown]
  - Off label use [Unknown]
